FAERS Safety Report 7733880-2 (Version None)
Quarter: 2011Q3

REPORT INFORMATION
  Report Type: 
  Country: None (occurrence: None)
  Receive Date: 20110906
  Receipt Date: 20110906
  Transmission Date: 20111222
  Serious: Yes (Other)
  Sender: FDA-Public Use
  Company Number: None

PATIENT
  Age: 46 Year
  Sex: Male
  Weight: 113.3993 kg

DRUGS (1)
  1. CLOTRIMAZOLE [Suspect]
     Indication: TONGUE DISCOLOURATION
     Dates: start: 20110727

REACTIONS (6)
  - ABDOMINAL PAIN [None]
  - SLEEP APNOEA SYNDROME [None]
  - PRODUCT SUBSTITUTION ISSUE [None]
  - VOMITING [None]
  - DRUG INEFFECTIVE [None]
  - PRODUCT QUALITY ISSUE [None]
